FAERS Safety Report 8387823-1 (Version None)
Quarter: 2012Q2

REPORT INFORMATION
  Report Type: 
  Country: None (occurrence: None)
  Receive Date: 20120525
  Receipt Date: 20120403
  Transmission Date: 20120825
  Serious: No
  Sender: FDA-Public Use
  Company Number: US-BRISTOL-MYERS SQUIBB COMPANY-16500001

PATIENT
  Sex: Female

DRUGS (4)
  1. LEVEMIR [Concomitant]
  2. GLUCOTROL [Concomitant]
  3. KOMBIGLYZE XR [Suspect]
     Dosage: FORMULATION-KOMBIGLYZE 5/1000
  4. METFORMIN HCL [Suspect]

REACTIONS (2)
  - ABDOMINAL DISCOMFORT [None]
  - BLOOD GLUCOSE INCREASED [None]
